FAERS Safety Report 22265187 (Version 1)
Quarter: 2023Q2

REPORT INFORMATION
  Report Type: Spontaneous
  Country: US (occurrence: None)
  Receive Date: 20230428
  Receipt Date: 20230428
  Transmission Date: 20230722
  Serious: Yes (Other)
  Sender: FDA-Public Use
  Company Number: 2023A095117

PATIENT
  Age: 822 Month

DRUGS (1)
  1. FARXIGA [Suspect]
     Active Substance: DAPAGLIFLOZIN PROPANEDIOL
     Route: 048
     Dates: start: 202209, end: 202302

REACTIONS (7)
  - Fungal infection [Unknown]
  - Bladder disorder [Unknown]
  - Vomiting [Unknown]
  - Skin laceration [Not Recovered/Not Resolved]
  - Genital pain [Not Recovered/Not Resolved]
  - Skin mass [Not Recovered/Not Resolved]
  - Genital infection female [Unknown]

NARRATIVE: CASE EVENT DATE: 20221101
